FAERS Safety Report 4274625-0 (Version None)
Quarter: 2004Q1

REPORT INFORMATION
  Report Type: 
  Country: None (occurrence: None)
  Receive Date: 20040115
  Receipt Date: 20040105
  Transmission Date: 20041129
  Serious: Yes (Death)
  Sender: FDA-Public Use
  Company Number: 2003SE05624

PATIENT
  Age: 42 Year
  Sex: Female

DRUGS (3)
  1. SEROQUEL [Suspect]
  2. NITRAZEPAM [Suspect]
  3. OXAZEPAM [Suspect]

REACTIONS (2)
  - HEPATIC STEATOSIS [None]
  - INTENTIONAL OVERDOSE [None]
